FAERS Safety Report 11619373 (Version 3)
Quarter: 2015Q4

REPORT INFORMATION
  Report Type: Spontaneous
  Country: IT (occurrence: IT)
  Receive Date: 20151012
  Receipt Date: 20151118
  Transmission Date: 20160304
  Serious: Yes (Hospitalization, Other)
  Sender: FDA-Public Use
  Company Number: IT-DEP_12815_2015

PATIENT
  Age: 44 Year
  Sex: Male

DRUGS (4)
  1. PALEXIA [Suspect]
     Active Substance: TAPENTADOL HYDROCHLORIDE
     Indication: PRODUCT USED FOR UNKNOWN INDICATION
     Dosage: ONCE
     Route: 048
     Dates: start: 20150520, end: 20150520
  2. SEROQUEL [Suspect]
     Active Substance: QUETIAPINE FUMARATE
     Dosage: ONCE
     Route: 048
     Dates: start: 20150520, end: 20150520
  3. LORAZEPAM (LORAZEPAM) [Concomitant]
     Active Substance: LORAZEPAM
     Dosage: DF
  4. SEROQUEL [Suspect]
     Active Substance: QUETIAPINE FUMARATE
     Indication: PERSONALITY DISORDER
     Dosage: IN THE EVENING
     Route: 048

REACTIONS (5)
  - Intentional overdose [Recovered/Resolved]
  - Faeces discoloured [Recovered/Resolved]
  - Hypokinesia [Recovered/Resolved]
  - Intentional self-injury [Recovered/Resolved]
  - Sedation [Recovered/Resolved]

NARRATIVE: CASE EVENT DATE: 20150520
